FAERS Safety Report 5479749-8 (Version None)
Quarter: 2007Q4

REPORT INFORMATION
  Report Type: 
  Country: None (occurrence: None)
  Receive Date: 20071003
  Receipt Date: 20070924
  Transmission Date: 20080405
  Serious: Yes (Death)
  Sender: FDA-Public Use
  Company Number: 013192

PATIENT
  Age: 53 Year
  Sex: Female

DRUGS (4)
  1. PRIALT [Suspect]
     Indication: BACK PAIN
     Dosage: 0.05 UG, ONCE/HOUR, INTRATHECAL; 0.16 UG, ONCE/HOUR, INTRATHECAL
     Route: 037
     Dates: start: 20070401
  2. PERCOCET [Concomitant]
  3. BACLOFEN [Concomitant]
  4. DILAUDID [Concomitant]

REACTIONS (2)
  - ABNORMAL BEHAVIOUR [None]
  - OEDEMA PERIPHERAL [None]
